FAERS Safety Report 18897717 (Version 1)
Quarter: 2021Q1

REPORT INFORMATION
  Report Type: Spontaneous
  Country: US (occurrence: US)
  Receive Date: 20210212
  Receipt Date: 20210212
  Transmission Date: 20210420
  Serious: Yes (Other)
  Sender: FDA-Public Use
  Company Number: None

PATIENT
  Age: 65 Year
  Sex: Male
  Weight: 150.6 kg

DRUGS (14)
  1. AMLODIPINE [Concomitant]
     Active Substance: AMLODIPINE BESYLATE
  2. C?PAP MACHINE [Concomitant]
     Active Substance: DEVICE
  3. PRAVASTATIN. [Concomitant]
     Active Substance: PRAVASTATIN
  4. BICALUTAMIDE. [Concomitant]
     Active Substance: BICALUTAMIDE
  5. TAMSULOSIN [Concomitant]
     Active Substance: TAMSULOSIN
  6. VITAMIN D3 [Concomitant]
     Active Substance: CHOLECALCIFEROL
  7. METFORMIN [Concomitant]
     Active Substance: METFORMIN HYDROCHLORIDE
  8. SPIRONOLATONE [Concomitant]
     Active Substance: SPIRONOLACTONE
  9. LISINOPRIL. [Concomitant]
     Active Substance: LISINOPRIL
  10. MAGNESIUM [Concomitant]
     Active Substance: MAGNESIUM
  11. CARVEDILOL. [Concomitant]
     Active Substance: CARVEDILOL
  12. ASPIRINE LOW DOSE [Concomitant]
  13. DICLOFENAC SODIUM TOPICAL GEL [Suspect]
     Active Substance: DICLOFENAC SODIUM
     Indication: RASH
     Dosage: ?          QUANTITY:2 G GRAM(S);?
     Route: 058
     Dates: start: 20210201, end: 20210203
  14. ASPIRIN LOW DOSE [Concomitant]
     Active Substance: ASPIRIN

REACTIONS (1)
  - Purpura [None]

NARRATIVE: CASE EVENT DATE: 20210203
